FAERS Safety Report 21386710 (Version 1)
Quarter: 2022Q3

REPORT INFORMATION
  Report Type: Spontaneous
  Country: GR (occurrence: GR)
  Receive Date: 20220928
  Receipt Date: 20220928
  Transmission Date: 20221027
  Serious: Yes (Other)
  Sender: FDA-Public Use
  Company Number: GR-AMGEN-GRCSP2022164941

PATIENT
  Age: 76 Year
  Sex: Male

DRUGS (2)
  1. PROLIA [Suspect]
     Active Substance: DENOSUMAB
     Indication: Osteoporosis
     Dosage: UNK
     Route: 065
  2. XGEVA [Suspect]
     Active Substance: DENOSUMAB
     Indication: Neuroendocrine carcinoma metastatic
     Dosage: UNK UNK, Q3MO
     Route: 065
     Dates: start: 202111

REACTIONS (3)
  - Neuroendocrine carcinoma metastatic [Unknown]
  - Pulpitis dental [Unknown]
  - Off label use [Unknown]

NARRATIVE: CASE EVENT DATE: 20211101
